FAERS Safety Report 6430093-1 (Version None)
Quarter: 2009Q4

REPORT INFORMATION
  Report Type: 
  Country: None (occurrence: None)
  Receive Date: 20091106
  Receipt Date: 20091102
  Transmission Date: 20100525
  Serious: Yes (Hospitalization)
  Sender: FDA-Public Use
  Company Number: US-BRISTOL-MYERS SQUIBB COMPANY-14840359

PATIENT
  Age: 73 Year
  Sex: Female

DRUGS (2)
  1. CEFEPIME [Suspect]
     Indication: PNEUMONIA
     Dosage: OVER 5 DAYS
  2. AMIKACIN [Suspect]

REACTIONS (2)
  - ENCEPHALOPATHY [None]
  - STATUS EPILEPTICUS [None]
